FAERS Safety Report 8587325-3 (Version None)
Quarter: 2012Q3

REPORT INFORMATION
  Report Type: 
  Country: None (occurrence: None)
  Receive Date: 20120810
  Receipt Date: 20120206
  Transmission Date: 20120928
  Serious: No
  Sender: FDA-Public Use
  Company Number: US-ASTRAZENECA-2012SE07895

PATIENT
  Sex: Female

DRUGS (1)
  1. ARIMIDEX [Suspect]
     Indication: OVARIAN CANCER
     Route: 048

REACTIONS (3)
  - GASTROOESOPHAGEAL REFLUX DISEASE [None]
  - VOMITING [None]
  - OFF LABEL USE [None]
